FAERS Safety Report 6405082-3 (Version None)
Quarter: 2009Q4

REPORT INFORMATION
  Report Type: 
  Country: None (occurrence: None)
  Receive Date: 20091019
  Receipt Date: 20090929
  Transmission Date: 20100525
  Serious: Yes (Other)
  Sender: FDA-Public Use
  Company Number: BR-PFIZER INC-2009275769

PATIENT

DRUGS (1)
  1. LINEZOLID [Suspect]

REACTIONS (4)
  - OEDEMA PERIPHERAL [None]
  - SCAR [None]
  - SKIN EXFOLIATION [None]
  - STOMATITIS [None]
